FAERS Safety Report 7351053-2 (Version None)
Quarter: 2011Q1

REPORT INFORMATION
  Report Type: 
  Country: None (occurrence: None)
  Receive Date: 20110314
  Receipt Date: 20110307
  Transmission Date: 20110831
  Serious: Yes (Hospitalization, Other)
  Sender: FDA-Public Use
  Company Number: US-ABBOTT-11P-163-0709582-00

PATIENT
  Sex: Male

DRUGS (1)
  1. DEPAKOTE [Suspect]
     Indication: EPILEPSY

REACTIONS (13)
  - TOXIC ENCEPHALOPATHY [None]
  - DEMENTIA [None]
  - EMOTIONAL DISTRESS [None]
  - LACERATION [None]
  - IMPAIRED SELF-CARE [None]
  - TOXICITY TO VARIOUS AGENTS [None]
  - ACUTE STRESS DISORDER [None]
  - INTENTIONAL SELF-INJURY [None]
  - CONTUSION [None]
  - SELF INJURIOUS BEHAVIOUR [None]
  - LIVER DISORDER [None]
  - INTRACRANIAL PRESSURE INCREASED [None]
  - HYPERAMMONAEMIA [None]
